FAERS Safety Report 21163831 (Version 1)
Quarter: 2022Q3

REPORT INFORMATION
  Report Type: Report from Study
  Country: US (occurrence: US)
  Receive Date: 20220803
  Receipt Date: 20220803
  Transmission Date: 20221027
  Serious: Yes (Death, Life-Threatening, Hospitalization, Other)
  Sender: FDA-Public Use
  Company Number: US-BRISTOL-MYERS SQUIBB COMPANY-2022-081415

PATIENT
  Age: 49 Year
  Sex: Male
  Weight: 102 kg

DRUGS (13)
  1. DASATINIB [Suspect]
     Active Substance: DASATINIB
     Indication: Pancreatic carcinoma
     Dosage: DAY 1-14
     Route: 048
     Dates: start: 20140811, end: 20141007
  2. FLUOROURACIL [Suspect]
     Active Substance: FLUOROURACIL
     Indication: Pancreatic carcinoma
     Route: 042
     Dates: start: 20140811, end: 20141007
  3. FLUOROURACIL [Suspect]
     Active Substance: FLUOROURACIL
     Route: 042
     Dates: start: 20140811, end: 20141007
  4. LEUCOVORIN CALCIUM [Suspect]
     Active Substance: LEUCOVORIN CALCIUM
     Indication: Pancreatic carcinoma
     Dosage: 400 MG/
     Route: 042
     Dates: start: 20140811, end: 20141007
  5. OXALIPLATIN [Suspect]
     Active Substance: OXALIPLATIN
     Indication: Pancreatic carcinoma
     Route: 042
     Dates: start: 20140811, end: 20141007
  6. SODIUM CHLORIDE [Concomitant]
     Active Substance: SODIUM CHLORIDE
     Indication: Product used for unknown indication
  7. HYDROMORPHONE [Concomitant]
     Active Substance: HYDROMORPHONE
     Indication: Product used for unknown indication
  8. ATROPINE [Concomitant]
     Active Substance: ATROPINE
     Indication: Product used for unknown indication
     Dosage: OPHTHALMIC SOLUTION
  9. LORAZEPAM [Concomitant]
     Active Substance: LORAZEPAM
     Indication: Product used for unknown indication
     Dosage: INJECT 0.25-0.5 ML INTO THE VEIN EVERY 4 HOURS PRN
  10. ONDANSETRON [Concomitant]
     Active Substance: ONDANSETRON
     Indication: Product used for unknown indication
     Dosage: 4 MG/2 ML
  11. SCOPOLAMINE [Concomitant]
     Active Substance: SCOPOLAMINE
     Indication: Product used for unknown indication
     Dosage: 1 PATCH
  12. ZOMETA [Concomitant]
     Active Substance: ZOLEDRONIC ACID
     Indication: Blood calcium increased
     Dosage: ZOMETA X 1
  13. CALCITONIN [Concomitant]
     Active Substance: CALCITONIN
     Indication: Blood calcium increased
     Dosage: CALCITONIN X 4

REACTIONS (2)
  - Acute respiratory failure [Unknown]
  - Malignant neoplasm progression [Fatal]

NARRATIVE: CASE EVENT DATE: 20141108
